FAERS Safety Report 13055632 (Version 1)
Quarter: 2016Q4

REPORT INFORMATION
  Report Type: Spontaneous
  Country: US (occurrence: US)
  Receive Date: 20161222
  Receipt Date: 20161222
  Transmission Date: 20170207
  Serious: No
  Sender: FDA-Public Use
  Company Number: US-CELGENEUS-USA-2016124134

PATIENT
  Sex: Male

DRUGS (2)
  1. THALOMID [Suspect]
     Active Substance: THALIDOMIDE
     Dosage: 50MG
     Route: 048
     Dates: start: 201503
  2. THALOMID [Suspect]
     Active Substance: THALIDOMIDE
     Indication: VASCULAR MALFORMATION
     Dosage: 100MG
     Route: 048
     Dates: start: 201502

REACTIONS (1)
  - International normalised ratio decreased [Unknown]
